FAERS Safety Report 25528221 (Version 1)
Quarter: 2025Q3

REPORT INFORMATION
  Report Type: Report from Study
  Country: EU (occurrence: EU)
  Receive Date: 20250708
  Receipt Date: 20250708
  Transmission Date: 20251020
  Serious: Yes (Other)
  Sender: RANBAXY
  Company Number: EU-SUN PHARMACEUTICAL INDUSTRIES INC-2025R1-515479

PATIENT
  Age: 78 Year
  Sex: Male

DRUGS (4)
  1. METOPROLOL [Suspect]
     Active Substance: METOPROLOL
     Indication: Hypertension
     Dosage: 100 MILLIGRAM, QD
     Route: 065
  2. MOXONIDINE [Suspect]
     Active Substance: MOXONIDINE
     Indication: Hypertension
     Dosage: 0.2 MILLIGRAM, QD
     Route: 065
  3. AMLODIPINE BESYLATE\LISINOPRIL [Suspect]
     Active Substance: AMLODIPINE BESYLATE\LISINOPRIL
     Indication: Hypertension
     Dosage: UNK, QD 10/5MG
     Route: 065
  4. MIRABEGRON [Suspect]
     Active Substance: MIRABEGRON
     Indication: Benign prostatic hyperplasia
     Dosage: 50 MILLIGRAM, QD
     Route: 065

REACTIONS (1)
  - Basal cell carcinoma [Unknown]
